FAERS Safety Report 14210873 (Version 1)
Quarter: 2017Q4

REPORT INFORMATION
  Report Type: Spontaneous
  Country: US (occurrence: US)
  Receive Date: 20171121
  Receipt Date: 20171121
  Transmission Date: 20180321
  Serious: No
  Sender: FDA-Public Use
  Company Number: US-BAUSCH-BL-2017-022629

PATIENT
  Age: 61 Year
  Sex: Female
  Weight: 90.8 kg

DRUGS (3)
  1. LATANOPROST. [Concomitant]
     Active Substance: LATANOPROST
     Indication: INTRAOCULAR PRESSURE TEST
     Dosage: QHS (EVERY NIGHT AT BEDTIME)
     Route: 061
  2. LOTEMAX [Suspect]
     Active Substance: LOTEPREDNOL ETABONATE
     Indication: POSTOPERATIVE CARE
     Dosage: ONE DROP IN THE RIGHT EYE EVERY MORNING
     Route: 047
     Dates: start: 201611, end: 20170721
  3. SIMBRINZA [Concomitant]
     Active Substance: BRIMONIDINE TARTRATE\BRINZOLAMIDE
     Indication: POSTOPERATIVE CARE
     Dosage: AS DIRECTED
     Route: 061

REACTIONS (2)
  - Intentional product use issue [Unknown]
  - Treatment noncompliance [Unknown]

NARRATIVE: CASE EVENT DATE: 20170721
